FAERS Safety Report 6056792-1 (Version None)
Quarter: 2009Q1

REPORT INFORMATION
  Report Type: 
  Country: None (occurrence: None)
  Receive Date: 20090126
  Receipt Date: 20090126
  Transmission Date: 20090719
  Serious: Yes (Other)
  Sender: FDA-Public Use
  Company Number: None

PATIENT
  Age: 26 Year
  Sex: Male
  Weight: 124.7392 kg

DRUGS (1)
  1. CHANTIX [Suspect]
     Indication: SMOKING CESSATION THERAPY
     Dosage: HALF A PILL 1 A DAY FOR 1 WEEK FULL PILL AS DIRECTED
     Dates: start: 20080125, end: 20080420

REACTIONS (13)
  - ABNORMAL BEHAVIOUR [None]
  - ABNORMAL DREAMS [None]
  - AGGRESSION [None]
  - AGITATION [None]
  - ANGER [None]
  - APATHY [None]
  - CHEST PAIN [None]
  - DEPRESSION [None]
  - EUPHORIC MOOD [None]
  - FRUSTRATION [None]
  - HEADACHE [None]
  - HISTRIONIC PERSONALITY DISORDER [None]
  - PSYCHOTIC DISORDER [None]
